FAERS Safety Report 5471435-3 (Version None)
Quarter: 2007Q3

REPORT INFORMATION
  Report Type: 
  Country: None (occurrence: None)
  Receive Date: 20070928
  Receipt Date: 20061017
  Transmission Date: 20080115
  Serious: No
  Sender: FDA-Public Use
  Company Number: US-BRISTOL-MYERS SQUIBB COMPANY-13544531

PATIENT
  Age: 28 Year
  Sex: Female
  Weight: 121 kg

DRUGS (5)
  1. DEFINITY [Suspect]
     Indication: ECHOCARDIOGRAM
     Dosage: CUSTOMER RECEIVED A DILUTED DOSE OF DEFINITY (2CC) (1.5CC OF DEFINITY IN 7CC OF NORMAL SALINE.
     Route: 042
     Dates: start: 20061017, end: 20061017
  2. SODIUM CHLORIDE [Concomitant]
     Indication: ECHOCARDIOGRAM
  3. PAXIL [Concomitant]
  4. WELLBUTRIN [Concomitant]
  5. XANAX [Concomitant]

REACTIONS (2)
  - BACK PAIN [None]
  - FLUSHING [None]
